FAERS Safety Report 9065772 (Version 1)
Quarter: 2013Q1

REPORT INFORMATION
  Report Type: Spontaneous
  Country: US (occurrence: US)
  Receive Date: 20130214
  Receipt Date: 20130214
  Transmission Date: 20140127
  Serious: No
  Sender: FDA-Public Use
  Company Number: US-BAYER-2013-010858

PATIENT
  Age: 59 Year
  Sex: Male

DRUGS (4)
  1. LEVITRA [Suspect]
     Indication: SEXUAL DYSFUNCTION
     Dosage: 20 MG, OW
     Route: 048
     Dates: start: 201209, end: 20130118
  2. QUINAPRIL [Concomitant]
     Indication: HYPERTENSION
     Dosage: 40 MG, QD
  3. HYDROCHLOROTHIAZIDE [Concomitant]
     Dosage: 25 MG, QOD
  4. VITAMINS NOS [Concomitant]
     Dosage: DAILY

REACTIONS (2)
  - Headache [Not Recovered/Not Resolved]
  - Drug ineffective [Not Recovered/Not Resolved]
